FAERS Safety Report 14726612 (Version 5)
Quarter: 2021Q1

REPORT INFORMATION
  Report Type: Spontaneous
  Country: US (occurrence: US)
  Receive Date: 20180406
  Receipt Date: 20210302
  Transmission Date: 20210419
  Serious: Yes (Disabling, Other)
  Sender: FDA-Public Use
  Company Number: US-009507513-1804USA000096

PATIENT
  Sex: Female
  Weight: 98.87 kg

DRUGS (8)
  1. STERILE DILUENT (WATER) [Suspect]
     Active Substance: WATER
     Dosage: UNK
     Route: 065
     Dates: start: 20141204, end: 20141204
  2. ZOSTAVAX [Suspect]
     Active Substance: VARICELLA-ZOSTER VIRUS STRAIN OKA/MERCK LIVE ANTIGEN
     Indication: PROPHYLAXIS
     Dosage: 1 DOSAGE FORM
     Route: 065
     Dates: start: 20141204, end: 20141204
  3. FOLIC ACID. [Concomitant]
     Active Substance: FOLIC ACID
     Dosage: UNK
  4. METHOTREXATE. [Concomitant]
     Active Substance: METHOTREXATE
     Dosage: UNK
  5. HUMIRA [Suspect]
     Active Substance: ADALIMUMAB
     Dosage: UNK
  6. MICROGESTIN [Concomitant]
     Active Substance: ETHINYL ESTRADIOL\NORETHINDRONE ACETATE
     Dosage: UNK
  7. TOPAMAX [Suspect]
     Active Substance: TOPIRAMATE
     Dosage: UNK
  8. SUMATRIPTAN. [Suspect]
     Active Substance: SUMATRIPTAN
     Dosage: UNK

REACTIONS (27)
  - Migraine [Unknown]
  - Diarrhoea [Unknown]
  - Victim of crime [Unknown]
  - Post-traumatic stress disorder [Unknown]
  - Sleep apnoea syndrome [Recovering/Resolving]
  - Essential hypertension [Recovering/Resolving]
  - Weight increased [Not Recovered/Not Resolved]
  - Stress [Unknown]
  - Chloasma [Unknown]
  - Inappropriate schedule of product administration [Unknown]
  - Major depression [Recovering/Resolving]
  - Facial pain [Not Recovered/Not Resolved]
  - Chest discomfort [Unknown]
  - Cough [Unknown]
  - Oral herpes [Unknown]
  - Facial paralysis [Unknown]
  - Exposure keratitis [Unknown]
  - Herpes zoster [Unknown]
  - Dry eye [Unknown]
  - Iron deficiency [Unknown]
  - Paraesthesia [Unknown]
  - Trigeminal neuralgia [Unknown]
  - Hypothyroidism [Unknown]
  - Post herpetic neuralgia [Unknown]
  - Anxiety [Unknown]
  - Melanocytic naevus [Unknown]
  - Headache [Unknown]

NARRATIVE: CASE EVENT DATE: 20141204
